FAERS Safety Report 15277083 (Version 2)
Quarter: 2019Q1

REPORT INFORMATION
  Report Type: Spontaneous
  Country: IT (occurrence: IT)
  Receive Date: 20180814
  Receipt Date: 20190204
  Transmission Date: 20190417
  Serious: Yes (Other)
  Sender: FDA-Public Use
  Company Number: IT-AMGEN-ITASP2018108461

PATIENT
  Age: 67 Year
  Sex: Female
  Weight: 55 kg

DRUGS (11)
  1. ASPIRINA [Concomitant]
     Active Substance: ASPIRIN
     Dosage: UNK
  2. ACIDO ZOLEDRONICO SANDOZ [Suspect]
     Active Substance: ZOLEDRONIC ACID
     Indication: METASTASES TO BONE
     Dosage: 4 MG, UNK
     Route: 065
     Dates: start: 20140519, end: 20141013
  3. TAMOXIFEN CITRATE. [Concomitant]
     Active Substance: TAMOXIFEN CITRATE
     Dosage: UNK
  4. SIMVASTATIN. [Concomitant]
     Active Substance: SIMVASTATIN
     Dosage: UNK
  5. EXEMESTANE ACTAVIS [Concomitant]
     Active Substance: EXEMESTANE
     Dosage: UNK
  6. SOTALOL. [Concomitant]
     Active Substance: SOTALOL
     Dosage: UNK
  7. DIBASE [Concomitant]
     Active Substance: CHOLECALCIFEROL
     Dosage: UNK
  8. FEMARA [Concomitant]
     Active Substance: LETROZOLE
     Dosage: UNK
  9. AFINITOR [Concomitant]
     Active Substance: EVEROLIMUS
     Dosage: UNK
  10. XGEVA [Suspect]
     Active Substance: DENOSUMAB
     Indication: METASTASES TO BONE
     Dosage: 120 MG, UNK (CYCLICAL)
     Route: 058
     Dates: start: 20141107, end: 20170605
  11. FASLODEX [Concomitant]
     Active Substance: FULVESTRANT
     Dosage: UNK

REACTIONS (1)
  - Osteonecrosis of jaw [Recovering/Resolving]

NARRATIVE: CASE EVENT DATE: 20160125
